FAERS Safety Report 8308012-2 (Version None)
Quarter: 2012Q2

REPORT INFORMATION
  Report Type: 
  Country: None (occurrence: None)
  Receive Date: 20120424
  Receipt Date: 20120419
  Transmission Date: 20120825
  Serious: Yes (Other)
  Sender: FDA-Public Use
  Company Number: DE-GLAXOSMITHKLINE-D0075312A

PATIENT
  Sex: Male

DRUGS (2)
  1. VOTRIENT [Suspect]
     Indication: RENAL CELL CARCINOMA
     Route: 048
  2. UNKNOWN INJECTION [Suspect]
     Route: 042

REACTIONS (1)
  - INJECTION SITE ABSCESS [None]
